FAERS Safety Report 11277364 (Version 3)
Quarter: 2015Q4

REPORT INFORMATION
  Report Type: Report from Study
  Country: US (occurrence: US)
  Receive Date: 20150716
  Receipt Date: 20151015
  Transmission Date: 20160304
  Serious: Yes (Hospitalization, Other)
  Sender: FDA-Public Use
  Company Number: US-GILEAD-2015-0163288

PATIENT
  Age: 64 Year
  Sex: Male

DRUGS (11)
  1. IMIPRAMINE [Concomitant]
     Active Substance: IMIPRAMINE
  2. RANOLAZINE [Suspect]
     Active Substance: RANOLAZINE
     Dosage: 500 MG, BID
     Route: 048
  3. ASPIRIN                            /00002701/ [Concomitant]
     Active Substance: ASPIRIN
  4. TAMSULOSIN [Concomitant]
     Active Substance: TAMSULOSIN
  5. MIDODRINE [Concomitant]
     Active Substance: MIDODRINE
  6. DILTIAZEM [Concomitant]
     Active Substance: DILTIAZEM
  7. IMDUR [Concomitant]
     Active Substance: ISOSORBIDE MONONITRATE
  8. PRAVASTATIN [Concomitant]
     Active Substance: PRAVASTATIN\PRAVASTATIN SODIUM
  9. MORPHINE [Concomitant]
     Active Substance: MORPHINE
  10. NTG [Concomitant]
     Active Substance: NITROGLYCERIN
     Route: 060
  11. RANOLAZINE [Suspect]
     Active Substance: RANOLAZINE
     Indication: ANGINA PECTORIS
     Dosage: 1000 MG, BID
     Route: 048
     Dates: start: 201204

REACTIONS (3)
  - Drug dose omission [Unknown]
  - Chest pain [Unknown]
  - Angina pectoris [Not Recovered/Not Resolved]

NARRATIVE: CASE EVENT DATE: 20150420
